FAERS Safety Report 5831676-X (Version None)
Quarter: 2008Q3

REPORT INFORMATION
  Report Type: 
  Country: None (occurrence: None)
  Receive Date: 20080730
  Receipt Date: 20080717
  Transmission Date: 20090109
  Serious: Yes (Hospitalization)
  Sender: FDA-Public Use
  Company Number: TPA2008A01140

PATIENT
  Age: 56 Year
  Sex: Female
  Weight: 81.6475 kg

DRUGS (7)
  1. ACTOS [Suspect]
     Indication: TYPE 2 DIABETES MELLITUS
     Dosage: 1 IN 1 D, PER ORAL
     Route: 048
     Dates: start: 20080301, end: 20080501
  2. PLAVIX [Concomitant]
  3. LISINOPRIL [Concomitant]
  4. LIPITOR [Concomitant]
  5. VERAPAMIL [Concomitant]
  6. VITAMIN D [Concomitant]
  7. JANUVIA (ORAL ANTIDIABETICS) [Concomitant]

REACTIONS (5)
  - DIZZINESS [None]
  - GALLBLADDER DISORDER [None]
  - PANCREATITIS [None]
  - RASH GENERALISED [None]
  - WEIGHT INCREASED [None]
